FAERS Safety Report 8824088 (Version 1)
Quarter: 2012Q4

REPORT INFORMATION
  Report Type: 
  Country: US (occurrence: US)
  Receive Date: 20121003
  Receipt Date: 20121003
  Transmission Date: 20130627
  Serious: No
  Sender: FDA-Public Use
  Company Number: US-009507513-1209USA011070

PATIENT
  Age: 75 Year
  Sex: Female

DRUGS (1)
  1. SYLATRON [Suspect]
     Indication: MALIGNANT MELANOMA
     Dosage: 6 Microgram per kilogram, qw
     Route: 058
     Dates: start: 20120821

REACTIONS (1)
  - Diarrhoea [Unknown]
